FAERS Safety Report 5923868-6 (Version None)
Quarter: 2008Q4

REPORT INFORMATION
  Report Type: 
  Country: None (occurrence: None)
  Receive Date: 20081020
  Receipt Date: 20081009
  Transmission Date: 20090506
  Serious: Yes (Hospitalization)
  Sender: FDA-Public Use
  Company Number: US-MERCK-0810USA01819

PATIENT
  Sex: Male

DRUGS (2)
  1. INVANZ [Suspect]
     Indication: PANCREATIC ABSCESS
     Route: 042
  2. INVANZ [Suspect]
     Indication: INFECTION
     Route: 042

REACTIONS (1)
  - INJECTION SITE RASH [None]
